FAERS Safety Report 9698625 (Version 2)
Quarter: 2013Q4

REPORT INFORMATION
  Report Type: Spontaneous
  Country: FR (occurrence: FR)
  Receive Date: 20131120
  Receipt Date: 20131210
  Transmission Date: 20140711
  Serious: Yes (Hospitalization)
  Sender: FDA-Public Use
  Company Number: FR-PFIZER INC-2013329656

PATIENT
  Age: 86 Year
  Sex: Male

DRUGS (5)
  1. ORELOX [Suspect]
     Indication: BRONCHITIS
     Dosage: 2 DF, 2X/DAY
     Route: 048
     Dates: start: 20130701
  2. LASILIX [Interacting]
     Indication: DYSPNOEA
     Dosage: 1 DF, DAILY
     Route: 048
     Dates: start: 20130701
  3. HELICIDINE [Interacting]
     Indication: BRONCHITIS
     Dosage: 1 DF, 3X/DAY
     Route: 048
     Dates: start: 20130701, end: 20130703
  4. PREVISCAN [Interacting]
     Indication: ATRIAL FIBRILLATION
     Dosage: 1 DF, DAILY
     Route: 048
     Dates: start: 2010, end: 20130703
  5. DAFALGAN [Interacting]
     Indication: BRONCHITIS
     Dosage: 500 MG, 2 TO 6 DOSAGE FORMS DAILY
     Route: 048
     Dates: start: 20130701, end: 20130703

REACTIONS (2)
  - International normalised ratio increased [Recovered/Resolved]
  - Drug interaction [Recovered/Resolved]
